FAERS Safety Report 4580132-8 (Version None)
Quarter: 2005Q1

REPORT INFORMATION
  Report Type: 
  Country: None (occurrence: None)
  Receive Date: 20050210
  Receipt Date: 20050203
  Transmission Date: 20050727
  Serious: Yes (Life-Threatening)
  Sender: FDA-Public Use
  Company Number: 2005AP00910

PATIENT
  Age: 75 Year
  Sex: Female

DRUGS (14)
  1. FOSCAVIR [Suspect]
     Indication: PNEUMONIA CYTOMEGALOVIRAL
     Dosage: 9000 MG DAILY IV
     Route: 042
     Dates: start: 20050127, end: 20050131
  2. CIPROXAN [Suspect]
     Dosage: 600 MG DAILY
     Dates: start: 20050128, end: 20050131
  3. DIGOSIN [Concomitant]
  4. THEOPHYLLINE [Concomitant]
  5. SOLU-MEDROL [Concomitant]
  6. HUMULIN R [Concomitant]
  7. PREDOPA [Concomitant]
  8. LASIX [Concomitant]
  9. KETAMINE HCL [Concomitant]
  10. MIDAZOLAM HYDROCHLORIDE [Concomitant]
  11. FOY [Concomitant]
  12. OMEPRAL [Concomitant]
  13. DIPRIVAN [Concomitant]
  14. DENOSINE [Concomitant]

REACTIONS (3)
  - ANURIA [None]
  - HAEMODIALYSIS [None]
  - RENAL DISORDER [None]
